FAERS Safety Report 6304884-1 (Version None)
Quarter: 2009Q3

REPORT INFORMATION
  Report Type: 
  Country: None (occurrence: None)
  Receive Date: 20090806
  Receipt Date: 20090721
  Transmission Date: 20100115
  Serious: Yes (Hospitalization)
  Sender: FDA-Public Use
  Company Number: 2009S1012921

PATIENT
  Age: 57 Year
  Sex: Female

DRUGS (4)
  1. ALENDRONIC ACID (ALENDRONIC ACID) [Suspect]
     Indication: OSTEOPOROSIS PROPHYLAXIS
     Dosage: 70 MG;/WK, ORAL
     Route: 048
     Dates: start: 20090616, end: 20090617
  2. ACLASTA (ZOLEDRONIC ACID) [Suspect]
     Indication: OSTEOPOROSIS
     Dosage: 5 MG;/YR,  INTRAVENOUS
     Route: 042
     Dates: start: 20090625
  3. PREDNISOLONE [Concomitant]
  4. METHOTREXATE [Concomitant]

REACTIONS (3)
  - ANAEMIA [None]
  - HYPONATRAEMIA [None]
  - PYELONEPHRITIS [None]
